FAERS Safety Report 8662031 (Version 4)
Quarter: 2013Q3

REPORT INFORMATION
  Report Type: Report from Study
  Country: JP (occurrence: JP)
  Receive Date: 20120712
  Receipt Date: 20130716
  Transmission Date: 20140515
  Serious: Yes (Hospitalization)
  Sender: FDA-Public Use
  Company Number: JP-GLAXOSMITHKLINE-B0813768A

PATIENT
  Age: 97 Year
  Sex: Male
  Weight: 39 kg

DRUGS (7)
  1. REVOLADE [Suspect]
     Indication: IMMUNE THROMBOCYTOPENIC PURPURA
     Dosage: 12.5MG PER DAY
     Route: 048
     Dates: start: 20120328, end: 20120425
  2. REVOLADE [Suspect]
     Indication: IMMUNE THROMBOCYTOPENIC PURPURA
     Dosage: 25MG PER DAY
     Route: 048
     Dates: start: 20120426, end: 20120704
  3. TRANSAMIN [Concomitant]
     Indication: PROPHYLAXIS
     Route: 048
  4. PARIET [Concomitant]
     Indication: PROPHYLAXIS
     Route: 048
  5. BIOFERMIN [Concomitant]
     Route: 048
     Dates: start: 20120630, end: 20120703
  6. SENNOSIDE [Concomitant]
     Indication: PROPHYLAXIS
     Route: 048
  7. GAMMA-GLOBULIN [Concomitant]
     Indication: IMMUNE THROMBOCYTOPENIC PURPURA
     Route: 030

REACTIONS (1)
  - Myelodysplastic syndrome [Not Recovered/Not Resolved]
